FAERS Safety Report 14008264 (Version 2)
Quarter: 2017Q4

REPORT INFORMATION
  Report Type: Spontaneous
  Country: IT (occurrence: IT)
  Receive Date: 20170925
  Receipt Date: 20171005
  Transmission Date: 20180321
  Serious: Yes (Other)
  Sender: FDA-Public Use
  Company Number: IT-JNJFOC-20170919410

PATIENT
  Age: 45 Year
  Sex: Male
  Weight: 90 kg

DRUGS (6)
  1. LORAZEPAM. [Concomitant]
     Active Substance: LORAZEPAM
     Indication: PERSISTENT DEPRESSIVE DISORDER
     Route: 065
  2. FLUVOXAMINE [Concomitant]
     Active Substance: FLUVOXAMINE
     Indication: OBSESSIVE-COMPULSIVE DISORDER
     Route: 065
  3. TIVICAY [Suspect]
     Active Substance: DOLUTEGRAVIR SODIUM
     Indication: IMMUNODEFICIENCY
     Route: 048
  4. LORAZEPAM. [Concomitant]
     Active Substance: LORAZEPAM
     Indication: OBSESSIVE-COMPULSIVE DISORDER
     Route: 065
  5. INTELENCE [Suspect]
     Active Substance: ETRAVIRINE
     Indication: IMMUNODEFICIENCY
     Route: 048
  6. FLUVOXAMINE [Concomitant]
     Active Substance: FLUVOXAMINE
     Indication: PERSISTENT DEPRESSIVE DISORDER
     Route: 065

REACTIONS (13)
  - Back pain [Unknown]
  - Feeling cold [Unknown]
  - Mobility decreased [Unknown]
  - Skin hyperpigmentation [Not Recovered/Not Resolved]
  - Myalgia [Unknown]
  - Eczema [Unknown]
  - Erythema [Unknown]
  - Tinnitus [Not Recovered/Not Resolved]
  - Pain [Not Recovered/Not Resolved]
  - Pruritus generalised [Not Recovered/Not Resolved]
  - Muscle contracture [Not Recovered/Not Resolved]
  - Rash [Not Recovered/Not Resolved]
  - Arthralgia [Not Recovered/Not Resolved]

NARRATIVE: CASE EVENT DATE: 20170913
